FAERS Safety Report 5978725-6 (Version None)
Quarter: 2008Q4

REPORT INFORMATION
  Report Type: 
  Country: None (occurrence: None)
  Receive Date: 20081204
  Receipt Date: 20081124
  Transmission Date: 20090506
  Serious: Yes (Other)
  Sender: FDA-Public Use
  Company Number: US-AVENTIS-200818026US

PATIENT
  Sex: Male

DRUGS (13)
  1. LANTUS [Suspect]
     Route: 058
     Dates: start: 20070101, end: 20080101
  2. LANTUS [Suspect]
     Dosage: DOSE: FROM 33, INCREASED BY 2-3 UNITS AT A TIME TO 42
     Route: 058
     Dates: start: 20080101
  3. OPTICLIK (INSULIN INJECTION PEN) [Suspect]
  4. PLETAL [Concomitant]
     Route: 048
  5. CLONIDINE [Concomitant]
     Dosage: DOSE: 3 ^PILLS^
  6. METOPROLOL TARTRATE [Concomitant]
     Dosage: DOSE: 1/2 TAB
  7. SIMVASTATIN [Concomitant]
     Dosage: DOSE: 2 TABS/ 80 MG
  8. FLOMAX [Concomitant]
  9. ORAL ANTIDIABETICS [Concomitant]
     Dosage: DOSE: 1/2 TAB
  10. OMEPRAZOLE [Concomitant]
  11. SODIUM BICARBONATE [Concomitant]
     Dosage: DOSE: 1 TAB
  12. IRON [Concomitant]
     Dosage: DOSE: ^PILL^
  13. ERGOCALCIFEROL [Concomitant]
     Dosage: DOSE: UNK

REACTIONS (4)
  - BLOOD GLUCOSE INCREASED [None]
  - BLOOD POTASSIUM INCREASED [None]
  - HYPERTENSION [None]
  - RENAL CANCER [None]
